FAERS Safety Report 25997053 (Version 1)
Quarter: 2025Q4

REPORT INFORMATION
  Report Type: Spontaneous
  Country: US (occurrence: None)
  Receive Date: 20251104
  Receipt Date: 20251104
  Transmission Date: 20260118
  Serious: No
  Sender: FDA-CTU
  Company Number: None

PATIENT

DRUGS (4)
  1. NUCALA [Suspect]
     Active Substance: MEPOLIZUMAB
  2. PREGABALIN [Suspect]
     Active Substance: PREGABALIN
  3. METOPROLOL [Suspect]
     Active Substance: METOPROLOL
  4. PRAZOSIN [Suspect]
     Active Substance: PRAZOSIN

REACTIONS (1)
  - Carbon monoxide poisoning [None]
